FAERS Safety Report 24334361 (Version 1)
Quarter: 2024Q3

REPORT INFORMATION
  Report Type: Spontaneous
  Country: CA (occurrence: CA)
  Receive Date: 20240918
  Receipt Date: 20240918
  Transmission Date: 20241017
  Serious: Yes (Hospitalization)
  Sender: TEVA
  Company Number: CA-TEVA-VS-3243725

PATIENT
  Age: 59 Year
  Sex: Female
  Weight: 72.575 kg

DRUGS (1)
  1. PANTOPRAZOLE MAGNESIUM [Suspect]
     Active Substance: PANTOPRAZOLE MAGNESIUM
     Indication: Gastrooesophageal reflux disease
     Dosage: DESCRIPTION: TEVA-PANTOPRAZOLE MAGNESIUM, DOSE FORM: TABLET (DELAYED-RELEASE)
     Route: 048

REACTIONS (3)
  - Dyspepsia [Recovered/Resolved]
  - Decreased appetite [Recovered/Resolved]
  - Dysphagia [Recovered/Resolved]
